FAERS Safety Report 13382774 (Version 1)
Quarter: 2017Q1

REPORT INFORMATION
  Report Type: Report from Study
  Country: BR (occurrence: BR)
  Receive Date: 20170329
  Receipt Date: 20170329
  Transmission Date: 20170429
  Serious: Yes (Other)
  Sender: FDA-Public Use
  Company Number: BR-JNJFOC-20170219211

PATIENT
  Sex: Male

DRUGS (1)
  1. STELARA [Suspect]
     Active Substance: USTEKINUMAB
     Indication: PSORIASIS
     Route: 058
     Dates: start: 20151022

REACTIONS (6)
  - Diabetes mellitus [Unknown]
  - Haemorrhage [Unknown]
  - Depression [Unknown]
  - Blood cholesterol abnormal [Unknown]
  - Psoriasis [Unknown]
  - Hepatic function abnormal [Unknown]
